FAERS Safety Report 23903720 (Version 1)
Quarter: 2024Q2

REPORT INFORMATION
  Report Type: Spontaneous
  Country: US (occurrence: US)
  Receive Date: 20240527
  Receipt Date: 20240527
  Transmission Date: 20240716
  Serious: No
  Sender: FDA-Public Use
  Company Number: US-ALCON LABORATORIES-ALC2023US003031

PATIENT
  Sex: Female

DRUGS (3)
  1. SIMBRINZA [Suspect]
     Active Substance: BRIMONIDINE TARTRATE\BRINZOLAMIDE
     Indication: Intraocular pressure increased
     Dosage: 1 DRP EACH EYE, TID
     Route: 047
     Dates: start: 20230404
  2. SIMBRINZA [Suspect]
     Active Substance: BRIMONIDINE TARTRATE\BRINZOLAMIDE
     Dosage: 1 DRP EACH EYE, TID
     Route: 047
     Dates: start: 20230606
  3. LATANOPROST [Concomitant]
     Active Substance: LATANOPROST
     Indication: Intraocular pressure test
     Dosage: 1 DRP EACH EYE ONCE A DAY BEFORE BED, SHE WAS LEAVING ENOUGH TIME BETWEEN BOTH DROPS
     Route: 047

REACTIONS (2)
  - Head discomfort [Recovering/Resolving]
  - Somnolence [Recovering/Resolving]
